FAERS Safety Report 8157352-9 (Version None)
Quarter: 2012Q1

REPORT INFORMATION
  Report Type: 
  Country: None (occurrence: None)
  Receive Date: 20120222
  Receipt Date: 20120217
  Transmission Date: 20120608
  Serious: Yes (Death)
  Sender: FDA-Public Use
  Company Number: US-CELGENEUS-163-21880-12022038

PATIENT
  Sex: Male

DRUGS (7)
  1. ASPIRIN [Concomitant]
     Route: 065
  2. REVLIMID [Suspect]
     Dosage: 25 MILLIGRAM
     Route: 048
     Dates: start: 20120208, end: 20120201
  3. GLUCOPHAGE [Concomitant]
     Route: 065
  4. NORVASC [Concomitant]
     Route: 065
  5. REMERON [Concomitant]
     Route: 065
  6. DECADRON [Concomitant]
     Route: 065
  7. COZAAR [Concomitant]
     Route: 065

REACTIONS (1)
  - DEATH [None]
